FAERS Safety Report 8391424-9 (Version None)
Quarter: 2012Q1

REPORT INFORMATION
  Report Type: 
  Country: None (occurrence: None)
  Receive Date: 20120323
  Receipt Date: 20110510
  Transmission Date: 20120608
  Serious: Yes (Other)
  Sender: FDA-Public Use
  Company Number: 163-21880-11033302

PATIENT
  Age: 66 Year
  Sex: Female

DRUGS (7)
  1. REVLIMID [Suspect]
     Indication: MULTIPLE MYELOMA
     Dosage: 25 MG, DAILY X 21 DAYS, PO ; 10 MG, DAILY X 21 DAYS, PO
     Route: 048
     Dates: start: 20110301
  2. REVLIMID [Suspect]
     Indication: MULTIPLE MYELOMA
     Dosage: 25 MG, DAILY X 21 DAYS, PO ; 10 MG, DAILY X 21 DAYS, PO
     Route: 048
     Dates: start: 20110201
  3. POTASSIUM CHLORIDE [Concomitant]
  4. LEVOXYL [Concomitant]
  5. SENOKOT [Concomitant]
  6. B12 (CYANOCOBALAMIN) [Concomitant]
  7. DECADRON [Concomitant]

REACTIONS (1)
  - RASH [None]
